FAERS Safety Report 4578382-X (Version None)
Quarter: 2005Q1

REPORT INFORMATION
  Report Type: 
  Country: None (occurrence: None)
  Receive Date: 20050211
  Receipt Date: 20050201
  Transmission Date: 20050727
  Serious: Yes (Death, Other)
  Sender: FDA-Public Use
  Company Number: DE-BRISTOL-MYERS SQUIBB COMPANY-12844189

PATIENT
  Age: 53 Year
  Sex: Female

DRUGS (3)
  1. ABILIFY [Suspect]
     Indication: SCHIZOPHRENIA
     Dosage: 15 MG 28-JUL-04; 30 MG 09-NOV-04
     Dates: start: 20040728
  2. ABILIFY [Suspect]
     Dosage: 15 MG FROM 28-JUL-2004 TO 08-NOV-2004, 30 MG SINCE 09-NOV-2004
     Dates: start: 20040728
  3. SIMVASTATIN [Concomitant]
     Dosage: 10 MG SINCE JUL-04 ; THEN UP-TITRATED TO 20 MG MID NOV-04.
     Dates: start: 20040701

REACTIONS (6)
  - ALANINE AMINOTRANSFERASE INCREASED [None]
  - ASPARTATE AMINOTRANSFERASE INCREASED [None]
  - BLOOD CHOLESTEROL INCREASED [None]
  - BLOOD TRIGLYCERIDES INCREASED [None]
  - CARDIAC FAILURE [None]
  - GAMMA-GLUTAMYLTRANSFERASE INCREASED [None]
